FAERS Safety Report 6679317-6 (Version None)
Quarter: 2010Q2

REPORT INFORMATION
  Report Type: 
  Country: None (occurrence: None)
  Receive Date: 20100408
  Receipt Date: 20090721
  Transmission Date: 20101027
  Serious: No
  Sender: FDA-Public Use
  Company Number: 2009-00499

PATIENT
  Age: 72 Year
  Sex: Female
  Weight: 72.5755 kg

DRUGS (6)
  1. ZICAM COLD REMEDY RAPIDMELTS [Suspect]
     Dosage: BID - 2 DOSES
     Dates: start: 20090201, end: 20090201
  2. CARVEDILOL [Concomitant]
  3. PROPAFANONE [Concomitant]
  4. PRAVASTATIN [Concomitant]
  5. WARFARIN [Concomitant]
  6. LEVOTHYROXINE SODIUM [Concomitant]

REACTIONS (2)
  - AGEUSIA [None]
  - ANOSMIA [None]
